FAERS Safety Report 9407638 (Version 1)
Quarter: 2013Q3

REPORT INFORMATION
  Report Type: Spontaneous
  Country: US (occurrence: None)
  Receive Date: 20130717
  Receipt Date: 20130717
  Transmission Date: 20140515
  Serious: Yes (Other)
  Sender: FDA-Public Use
  Company Number: None

PATIENT
  Sex: Male
  Weight: 83.01 kg

DRUGS (2)
  1. INVEGA SUSTENNA IM 234 MG JANSSEN [Suspect]
     Indication: SCHIZOAFFECTIVE DISORDER
     Dosage: Q 2 WEEKS
     Route: 030
     Dates: start: 20130205
  2. INVEGA 9 MG JANSSEN [Suspect]
     Dosage: 9 DAYS
     Route: 048

REACTIONS (2)
  - Akathisia [None]
  - Ataxia [None]
